FAERS Safety Report 4858919-3 (Version None)
Quarter: 2005Q4

REPORT INFORMATION
  Report Type: 
  Country: None (occurrence: None)
  Receive Date: 20051219
  Receipt Date: 20050825
  Transmission Date: 20060501
  Serious: No
  Sender: FDA-Public Use
  Company Number: US-GLAXOSMITHKLINE-A0571806A

PATIENT
  Age: 62 Year
  Sex: Female

DRUGS (2)
  1. MEMBERS MARK NTS ORIGINAL, 21MG [Suspect]
     Dates: start: 20050812, end: 20050813
  2. NICORETTE [Suspect]

REACTIONS (7)
  - BURNING SENSATION MUCOSAL [None]
  - DIZZINESS [None]
  - EATING DISORDER [None]
  - HEADACHE [None]
  - MOUTH ULCERATION [None]
  - NAUSEA [None]
  - STOMATITIS [None]
